FAERS Safety Report 6640323-9 (Version None)
Quarter: 2010Q1

REPORT INFORMATION
  Report Type: 
  Country: None (occurrence: None)
  Receive Date: 20100318
  Receipt Date: 20100129
  Transmission Date: 20100710
  Serious: Yes (Death)
  Sender: FDA-Public Use
  Company Number: NL-ROCHE-690541

PATIENT
  Sex: Male

DRUGS (6)
  1. CAPECITABINE [Suspect]
     Indication: COLORECTAL CANCER
     Dosage: ARM 'A', DATE OF LAST CYCLE: 07 JAN 2010
     Route: 048
     Dates: start: 20090424
  2. BEVACIZUMAB [Suspect]
     Indication: COLORECTAL CANCER
     Dosage: CYCLE: 1, DATE OF LAST CYCLE: 07 JAN 2010
     Route: 042
     Dates: start: 20090424
  3. OXALIPLATIN [Suspect]
     Indication: COLORECTAL CANCER
     Dosage: CYCLE: 1, DATE OF LAST CYCLE: 07 JAN 2010
     Route: 042
     Dates: start: 20090424
  4. METOPROLOL TARTRATE [Concomitant]
     Dosage: DOSE REPORTED AS 50 MG, DRUG NAME REPORTED AS ESOMEPRAZOL 40 MG
  5. ESOPRAZOLE [Concomitant]
     Dosage: DRUG NAME REPORTED AS : ESOMEPRAZOL 40 MG
  6. OXYCODONE HCL [Concomitant]
     Dosage: DRUG NAME: OXYNORM 5 MG

REACTIONS (3)
  - ACUTE RESPIRATORY DISTRESS SYNDROME [None]
  - MALIGNANT NEOPLASM PROGRESSION [None]
  - PYREXIA [None]
